FAERS Safety Report 14997593 (Version 1)
Quarter: 2018Q2

REPORT INFORMATION
  Report Type: Spontaneous
  Country: US (occurrence: US)
  Receive Date: 20180611
  Receipt Date: 20180611
  Transmission Date: 20180711
  Serious: Yes (Other)
  Sender: FDA-Public Use
  Company Number: US-IMPAX LABORATORIES, INC-2018-IPXL-01964

PATIENT
  Age: 43 Year
  Sex: Female

DRUGS (2)
  1. ESTROGEN NOS [Suspect]
     Active Substance: ESTROGENS
     Indication: UTERINE LEIOMYOMA
     Dosage: UNK
     Route: 065
  2. METFORMIN HYDROCHLORIDE ER [Suspect]
     Active Substance: METFORMIN HYDROCHLORIDE
     Indication: GLUCOSE TOLERANCE IMPAIRED
     Dosage: UNK
     Route: 065

REACTIONS (1)
  - Intracardiac thrombus [Unknown]
